FAERS Safety Report 21074411 (Version 3)
Quarter: 2022Q4

REPORT INFORMATION
  Report Type: Report from Study
  Country: US (occurrence: US)
  Receive Date: 20220713
  Receipt Date: 20221129
  Transmission Date: 20230113
  Serious: Yes (Hospitalization, Other)
  Sender: FDA-Public Use
  Company Number: US-BRISTOL-MYERS SQUIBB COMPANY-2022-070836

PATIENT
  Age: 7 Year
  Sex: Female
  Weight: 29.6 kg

DRUGS (5)
  1. NIVOLUMAB [Suspect]
     Active Substance: NIVOLUMAB
     Indication: Brain stem glioma
     Route: 042
     Dates: start: 20220405
  2. INVESTIGATIONAL PRODUCT [Suspect]
     Active Substance: INVESTIGATIONAL PRODUCT
     Indication: Brain stem glioma
     Route: 058
     Dates: start: 20220405
  3. HILTONOL [Suspect]
     Active Substance: HILTONOL
     Indication: Brain stem glioma
     Route: 030
     Dates: start: 20220405
  4. Pabi-dexamethasone [Concomitant]
     Indication: Product used for unknown indication
     Dosage: 2-1-0 TABLET
     Route: 065
  5. OMEPRAZOLE [Concomitant]
     Active Substance: OMEPRAZOLE
     Indication: Product used for unknown indication
     Dosage: IN THE MORNING IN EMPTY STOMACH
     Route: 065

REACTIONS (1)
  - Hydrocephalus [Recovered/Resolved]

NARRATIVE: CASE EVENT DATE: 20220705
